FAERS Safety Report 18295576 (Version 1)
Quarter: 2020Q3

REPORT INFORMATION
  Report Type: Spontaneous
  Country: US (occurrence: US)
  Receive Date: 20200922
  Receipt Date: 20200922
  Transmission Date: 20201103
  Serious: Yes (Life-Threatening, Hospitalization, Other)
  Sender: FDA-Public Use
  Company Number: US-BRISTOL-MYERS SQUIBB COMPANY-BMS-2020-074538

PATIENT
  Age: 56 Year
  Sex: Female
  Weight: 82.1 kg

DRUGS (4)
  1. WARFARIN SODIUM. [Suspect]
     Active Substance: WARFARIN SODIUM
     Indication: PRODUCT USED FOR UNKNOWN INDICATION
     Route: 065
  2. REMODULIN [Suspect]
     Active Substance: TREPROSTINIL
     Dosage: 0.075 MICROGRAM/KILOGRAM CONTINUOUS
     Route: 058
  3. REMODULIN [Suspect]
     Active Substance: TREPROSTINIL
     Dosage: UNK
     Route: 041
     Dates: start: 2020, end: 2020
  4. REMODULIN [Suspect]
     Active Substance: TREPROSTINIL
     Indication: PULMONARY ARTERIAL HYPERTENSION
     Dosage: UNK, CONTINUING
     Route: 058
     Dates: start: 20170710

REACTIONS (6)
  - Post procedural haemorrhage [Unknown]
  - Pulmonary function test abnormal [Unknown]
  - Injection site erythema [Unknown]
  - Pulmonary mass [Unknown]
  - Injection site swelling [Unknown]
  - Haematemesis [Unknown]

NARRATIVE: CASE EVENT DATE: 2020
